FAERS Safety Report 25393176 (Version 5)
Quarter: 2025Q3

REPORT INFORMATION
  Report Type: Spontaneous
  Country: US (occurrence: US)
  Receive Date: 20250604
  Receipt Date: 20250816
  Transmission Date: 20251020
  Serious: Yes (Other)
  Sender: ALEXION PHARMACEUTICALS
  Company Number: US-AstraZeneca-CH-00879973A

PATIENT
  Sex: Male

DRUGS (1)
  1. FARXIGA [Suspect]
     Active Substance: DAPAGLIFLOZIN PROPANEDIOL
     Indication: Type 2 diabetes mellitus
     Route: 065

REACTIONS (17)
  - Renal impairment [Unknown]
  - Pollakiuria [Unknown]
  - Thirst [Unknown]
  - Peripheral swelling [Unknown]
  - Blister [Unknown]
  - Skin exfoliation [Unknown]
  - Condition aggravated [Unknown]
  - Joint swelling [Unknown]
  - Limb injury [Unknown]
  - Erythema [Unknown]
  - Limb injury [Unknown]
  - Erythema [Unknown]
  - Discharge [Unknown]
  - Rash [Unknown]
  - Pruritus [Unknown]
  - Sunburn [Unknown]
  - Swelling [Unknown]
